FAERS Safety Report 8290189-9 (Version None)
Quarter: 2012Q2

REPORT INFORMATION
  Report Type: 
  Country: None (occurrence: None)
  Receive Date: 20120417
  Receipt Date: 20120405
  Transmission Date: 20120825
  Serious: Yes (Hospitalization)
  Sender: FDA-Public Use
  Company Number: US-ACTELION-A-US2012-63866

PATIENT

DRUGS (1)
  1. TRACLEER [Suspect]
     Indication: PULMONARY ARTERIAL HYPERTENSION
     Dosage: UNK
     Route: 048
     Dates: start: 20090213

REACTIONS (9)
  - ROAD TRAFFIC ACCIDENT [None]
  - ABASIA [None]
  - SUBDURAL HAEMATOMA EVACUATION [None]
  - SUBDURAL HAEMATOMA [None]
  - CONTUSION [None]
  - HEAD INJURY [None]
  - FALL [None]
  - LOSS OF CONSCIOUSNESS [None]
  - SPEECH DISORDER [None]
